FAERS Safety Report 21191937 (Version 4)
Quarter: 2023Q4

REPORT INFORMATION
  Report Type: Report from Study
  Country: US (occurrence: US)
  Receive Date: 20220809
  Receipt Date: 20231019
  Transmission Date: 20240109
  Serious: Yes (Hospitalization)
  Sender: FDA-Public Use
  Company Number: US-BIOGEN-2022BI01146075

PATIENT
  Age: 52 Year
  Weight: 76.2 kg

DRUGS (4)
  1. TYSABRI [Suspect]
     Active Substance: NATALIZUMAB
     Indication: Acute graft versus host disease
     Route: 050
     Dates: start: 20170614
  2. METHYLPREDNISOLONE [Suspect]
     Active Substance: METHYLPREDNISOLONE
     Indication: Product used for unknown indication
     Dosage: STEROID TAPER : 6/13/2017 90 MG; 6/14/2017 180 MG; 6/15/2017 145 MG; 6/16/2017 145 MG ; 6/17/2017...
     Route: 050
  3. PREDNISONE [Concomitant]
     Active Substance: PREDNISONE
     Indication: Product used for unknown indication
     Route: 050
  4. TACROLIMUS [Concomitant]
     Active Substance: TACROLIMUS
     Indication: Product used for unknown indication
     Route: 050

REACTIONS (7)
  - Encephalitis viral [Recovered/Resolved]
  - Hypothermia [Recovered/Resolved]
  - Mental status changes [Recovered/Resolved]
  - Autonomic nervous system imbalance [Recovered/Resolved]
  - Meningitis [Recovered/Resolved]
  - Autoimmune encephalopathy [Recovered/Resolved]
  - Pneumonia [Recovered/Resolved]

NARRATIVE: CASE EVENT DATE: 20170614
